FAERS Safety Report 14573913 (Version 2)
Quarter: 2018Q1

REPORT INFORMATION
  Report Type: Spontaneous
  Country: GB (occurrence: GB)
  Receive Date: 20180226
  Receipt Date: 20180316
  Transmission Date: 20180509
  Serious: No
  Sender: FDA-Public Use
  Company Number: GB-VERTEX PHARMACEUTICALS-2018-001363

PATIENT
  Age: 15 Year
  Sex: Male

DRUGS (17)
  1. ORKAMBI [Suspect]
     Active Substance: IVACAFTOR\LUMACAFTOR
     Dosage: 1 TABLET, BID (200/125 MG)
     Route: 048
     Dates: start: 20180212, end: 20180214
  2. DEOXYRIBONUCLEASE, BOVINE [Concomitant]
     Indication: PULMONARY FUNCTION TEST ABNORMAL
  3. CREON [Concomitant]
     Active Substance: PANCRELIPASE AMYLASE\PANCRELIPASE LIPASE\PANCRELIPASE PROTEASE
     Dosage: 1-4 WITH MEALS AND SNACKS
  4. VITAMIN E                          /00110501/ [Concomitant]
     Active Substance: TOCOPHEROL
     Dosage: 75 IU, 3 TABLETS, QD
  5. OMALIZUMAB. [Concomitant]
     Active Substance: OMALIZUMAB
     Dosage: S/C 3 WEEKLY
  6. DEOXYRIBONUCLEASE, BOVINE [Concomitant]
     Indication: RESPIRATION ABNORMAL
     Dosage: 2.5 MG, QD
     Route: 055
  7. ORKAMBI [Suspect]
     Active Substance: IVACAFTOR\LUMACAFTOR
     Dosage: 2 TABLETS IN THE MORNING AND ONE AT NIGHT
     Route: 048
     Dates: start: 20180215, end: 20180217
  8. ORKAMBI [Suspect]
     Active Substance: IVACAFTOR\LUMACAFTOR
     Dosage: 1 TABLET, BID
     Route: 048
     Dates: start: 20180218
  9. CACIT                              /00944201/ [Concomitant]
     Active Substance: CALCIUM CARBONATE\CHOLECALCIFEROL
     Dosage: 1 SACHET, QD
  10. VITAMIN A + D [Concomitant]
     Dosage: 2 TABLETS, BID
  11. OMEPRAZOLE. [Concomitant]
     Active Substance: OMEPRAZOLE
     Dosage: 20 MG, QD
  12. BRICANYL [Concomitant]
     Active Substance: TERBUTALINE SULFATE
     Dosage: 2-5 CLICKS, PRN
  13. DEOXYRIBONUCLEASE, BOVINE [Concomitant]
     Indication: RESPIRATORY RATE INCREASED
  14. PREDNISOLONE. [Concomitant]
     Active Substance: PREDNISOLONE
     Dosage: 10 MG, QD
  15. ORKAMBI [Suspect]
     Active Substance: IVACAFTOR\LUMACAFTOR
     Indication: CYSTIC FIBROSIS
     Dosage: 1 TABLET (200/125 MG), QD
     Route: 048
     Dates: start: 20180208, end: 20180211
  16. SYMBICORT [Concomitant]
     Active Substance: BUDESONIDE\FORMOTEROL FUMARATE DIHYDRATE
     Dosage: 2 CLICKS, BID
  17. FULTIUM D3 [Concomitant]
     Active Substance: CHOLECALCIFEROL
     Dosage: 1 CAPSULE, QD

REACTIONS (2)
  - Respiration abnormal [Recovered/Resolved]
  - Respiratory rate increased [Recovered/Resolved]

NARRATIVE: CASE EVENT DATE: 201802
